FAERS Safety Report 24365736 (Version 2)
Quarter: 2025Q1

REPORT INFORMATION
  Report Type: Spontaneous
  Country: FR (occurrence: FR)
  Receive Date: 20240926
  Receipt Date: 20250115
  Transmission Date: 20250409
  Serious: Yes (Other)
  Sender: ROCHE
  Company Number: None

PATIENT
  Age: 5 Year
  Sex: Male
  Weight: 18 kg

DRUGS (1)
  1. RITUXIMAB [Suspect]
     Active Substance: RITUXIMAB
     Indication: Epstein-Barr virus infection reactivation
     Route: 042
     Dates: start: 202309

REACTIONS (2)
  - Lymphopenia [Recovering/Resolving]
  - B-lymphocyte abnormalities [Recovering/Resolving]

NARRATIVE: CASE EVENT DATE: 20231006
